FAERS Safety Report 25074287 (Version 1)
Quarter: 2025Q1

REPORT INFORMATION
  Report Type: Spontaneous
  Country: US (occurrence: None)
  Receive Date: 20250313
  Receipt Date: 20250313
  Transmission Date: 20250409
  Serious: Yes (Hospitalization)
  Sender: FDA-CTU
  Company Number: None

PATIENT
  Age: 60 Year
  Sex: Female
  Weight: 76.5 kg

DRUGS (3)
  1. FLUCONAZOLE [Suspect]
     Active Substance: FLUCONAZOLE
     Indication: Infection
     Route: 048
     Dates: start: 20250304, end: 20250310
  2. MAGNESIUM [Concomitant]
     Active Substance: MAGNESIUM
  3. POTASSIUM [Concomitant]
     Active Substance: POTASSIUM

REACTIONS (8)
  - Dizziness [None]
  - Headache [None]
  - Nausea [None]
  - Chest pain [None]
  - Chromaturia [None]
  - Faeces discoloured [None]
  - Cerebral thrombosis [None]
  - Presyncope [None]

NARRATIVE: CASE EVENT DATE: 20250306
